FAERS Safety Report 6914440-X (Version None)
Quarter: 2010Q3

REPORT INFORMATION
  Report Type: 
  Country: None (occurrence: None)
  Receive Date: 20100809
  Receipt Date: 20100729
  Transmission Date: 20110219
  Serious: Yes (Other)
  Sender: FDA-Public Use
  Company Number: CO-PFIZER INC-2010033235

PATIENT
  Age: 40 Year
  Sex: Female

DRUGS (4)
  1. CHAMPIX [Suspect]
     Indication: SMOKING CESSATION THERAPY
     Dosage: 0.5 MG, 1X/DAY
     Route: 048
     Dates: start: 20100217, end: 20100306
  2. CHAMPIX [Suspect]
     Dosage: UNK
     Dates: start: 20100309, end: 20100101
  3. BUSCAPINA [Concomitant]
     Indication: ABDOMINAL PAIN
  4. PLASIL [Concomitant]
     Indication: NAUSEA

REACTIONS (2)
  - OROPHARYNGEAL PAIN [None]
  - ROTAVIRUS INFECTION [None]
